FAERS Safety Report 19707832 (Version 10)
Quarter: 2024Q3

REPORT INFORMATION
  Report Type: Spontaneous
  Country: HR (occurrence: HR)
  Receive Date: 20210817
  Receipt Date: 20240826
  Transmission Date: 20241017
  Serious: Yes (Other)
  Sender: MYLAN
  Company Number: HR-002147023-NVSC2021HR042645

PATIENT
  Age: 56 Year
  Sex: Female

DRUGS (25)
  1. PANTOPRAZOLE [Suspect]
     Active Substance: PANTOPRAZOLE
     Indication: Product used for unknown indication
     Dosage: 40 MILLIGRAM, QD (20 MG, BID)
     Route: 065
  2. IBUPROFEN [Suspect]
     Active Substance: IBUPROFEN
     Indication: Product used for unknown indication
     Dosage: UNK
     Route: 065
  3. ADALIMUMAB [Suspect]
     Active Substance: ADALIMUMAB
     Indication: Pustular psoriasis
     Dosage: UNK
     Route: 058
  4. ADALIMUMAB [Suspect]
     Active Substance: ADALIMUMAB
     Indication: Generalised pustular psoriasis
  5. DICLOFENAC [Suspect]
     Active Substance: DICLOFENAC
     Indication: Product used for unknown indication
     Dosage: UNK
     Route: 065
  6. BILASTINE [Suspect]
     Active Substance: BILASTINE
     Indication: Product used for unknown indication
     Dosage: UNK
     Route: 048
  7. METHOTREXATE [Suspect]
     Active Substance: METHOTREXATE
     Indication: Pustular psoriasis
     Dosage: 15 MILLIGRAM (THERAPY START DATE: MAY-2020)
     Route: 065
  8. METHOTREXATE [Suspect]
     Active Substance: METHOTREXATE
     Indication: Generalised pustular psoriasis
  9. COSENTYX [Suspect]
     Active Substance: SECUKINUMAB
     Indication: Pustular psoriasis
     Dosage: UNK
     Route: 065
  10. COSENTYX [Suspect]
     Active Substance: SECUKINUMAB
     Indication: Generalised pustular psoriasis
  11. APREMILAST [Suspect]
     Active Substance: APREMILAST
     Indication: Pustular psoriasis
     Dosage: UNK
     Route: 016
  12. APREMILAST [Suspect]
     Active Substance: APREMILAST
     Indication: Generalised pustular psoriasis
  13. RISANKIZUMAB [Suspect]
     Active Substance: RISANKIZUMAB
     Indication: Pustular psoriasis
     Dosage: Q3MONTHS (THERAPY START DATE: DEC-2019)
     Route: 058
  14. RISANKIZUMAB [Suspect]
     Active Substance: RISANKIZUMAB
     Indication: Generalised pustular psoriasis
  15. PIOGLITAZONE [Suspect]
     Active Substance: PIOGLITAZONE
     Indication: Product used for unknown indication
     Dosage: UNK
     Route: 065
  16. LORATADINE [Suspect]
     Active Substance: LORATADINE
     Indication: Product used for unknown indication
     Dosage: UNK
     Route: 065
  17. KETOPROFEN [Suspect]
     Active Substance: KETOPROFEN
     Indication: Product used for unknown indication
     Dosage: UNK
     Route: 016
  18. DESLORATADINE [Suspect]
     Active Substance: DESLORATADINE
     Indication: Product used for unknown indication
     Dosage: 10 MILLIGRAM, 10 MG, 1+1+2 TB (TABLET)
     Route: 065
  19. METHYLPREDNISOLONE [Suspect]
     Active Substance: METHYLPREDNISOLONE
     Indication: Pustular psoriasis
     Dosage: 8 MILLIGRAM, QD (THERAPY START DATE: AUG-2020)
     Route: 065
     Dates: start: 202008
  20. METHYLPREDNISOLONE [Suspect]
     Active Substance: METHYLPREDNISOLONE
     Indication: Generalised pustular psoriasis
     Dosage: 10 MILLIGRAM, 10 MG (10 MG 1+1+2 TBL)
     Route: 065
  21. ACITRETIN [Suspect]
     Active Substance: ACITRETIN
     Indication: Pustular psoriasis
     Dosage: UNK
     Route: 065
  22. ACITRETIN [Suspect]
     Active Substance: ACITRETIN
     Indication: Generalised pustular psoriasis
  23. CETIRIZINE HYDROCHLORIDE [Suspect]
     Active Substance: CETIRIZINE HYDROCHLORIDE
     Indication: Product used for unknown indication
     Dosage: 10 MILLIGRAM (10 MG 1+1+2 TBL)
     Route: 065
  24. COSENTYX [Concomitant]
     Active Substance: SECUKINUMAB
     Indication: Pustular psoriasis
     Dosage: UNK, PRE FILLED SYRINGE (DEVICE) INJECTION
     Route: 065
  25. COSENTYX [Concomitant]
     Active Substance: SECUKINUMAB
     Indication: Generalised pustular psoriasis

REACTIONS (14)
  - Inflammatory bowel disease [Recovered/Resolved]
  - Face oedema [Unknown]
  - Diarrhoea [Recovered/Resolved]
  - Myalgia [Unknown]
  - Asthenia [Unknown]
  - Arthralgia [Unknown]
  - Weight decreased [Recovering/Resolving]
  - Erythema [Recovering/Resolving]
  - Urticaria [Unknown]
  - Fatigue [Unknown]
  - Faecal calprotectin increased [Unknown]
  - Product use in unapproved indication [Unknown]
  - Drug ineffective [Unknown]
  - Off label use [Unknown]

NARRATIVE: CASE EVENT DATE: 20200801
